FAERS Safety Report 5490276-4 (Version None)
Quarter: 2007Q4

REPORT INFORMATION
  Report Type: 
  Country: None (occurrence: None)
  Receive Date: 20071015
  Receipt Date: 20070629
  Transmission Date: 20080405
  Serious: No
  Sender: FDA-Public Use
  Company Number: 2007SP002435

PATIENT
  Age: 46 Year
  Sex: Female

DRUGS (4)
  1. LUNESTA [Suspect]
     Dosage: 3 MG; ORAL; 2 MG; ORAL; 1 MG; ORAL
     Route: 048
     Dates: start: 20070101, end: 20070101
  2. LUNESTA [Suspect]
     Dosage: 3 MG; ORAL; 2 MG; ORAL; 1 MG; ORAL
     Route: 048
     Dates: start: 20070101, end: 20070101
  3. LUNESTA [Suspect]
     Dosage: 3 MG; ORAL; 2 MG; ORAL; 1 MG; ORAL
     Route: 048
     Dates: end: 20070101
  4. EFFEXOR XR [Concomitant]

REACTIONS (1)
  - AMNESIA [None]
